FAERS Safety Report 25912308 (Version 1)
Quarter: 2025Q4

REPORT INFORMATION
  Report Type: Spontaneous
  Country: TR (occurrence: TR)
  Receive Date: 20251013
  Receipt Date: 20251013
  Transmission Date: 20260118
  Serious: Yes (Life-Threatening, Hospitalization, Other)
  Sender: BAXTER
  Company Number: TR-MLMSERVICE-20250929-PI661187-00128-1

PATIENT
  Age: 52 Year
  Sex: Female

DRUGS (14)
  1. CYCLOPHOSPHAMIDE [Suspect]
     Active Substance: CYCLOPHOSPHAMIDE
     Indication: Follicular dendritic cell sarcoma
     Dosage: SECOND LINE TREATMENT
     Route: 065
     Dates: start: 2021
  2. CYCLOPHOSPHAMIDE [Suspect]
     Active Substance: CYCLOPHOSPHAMIDE
     Indication: Metastases to liver
  3. DOXORUBICIN [Suspect]
     Active Substance: DOXORUBICIN
     Indication: Follicular dendritic cell sarcoma
     Dosage: SECOND LINE TREATMENT
     Route: 065
     Dates: start: 2021
  4. DOXORUBICIN [Suspect]
     Active Substance: DOXORUBICIN
     Indication: Metastases to liver
  5. VINCRISTINE [Suspect]
     Active Substance: VINCRISTINE
     Indication: Follicular dendritic cell sarcoma
     Dosage: SECOND LINE TREATMENT
     Route: 065
     Dates: start: 2021
  6. VINCRISTINE [Suspect]
     Active Substance: VINCRISTINE
     Indication: Metastases to liver
  7. ETOPOSIDE [Suspect]
     Active Substance: ETOPOSIDE
     Indication: Follicular dendritic cell sarcoma
     Dosage: SECOND LINE TREATMENT
     Route: 065
     Dates: start: 2021
  8. ETOPOSIDE [Suspect]
     Active Substance: ETOPOSIDE
     Indication: Metastases to liver
  9. PREDNISONE [Suspect]
     Active Substance: PREDNISONE
     Indication: Follicular dendritic cell sarcoma
     Dosage: SECOND LINE TREATMENT
     Route: 065
     Dates: start: 2021
  10. PREDNISONE [Suspect]
     Active Substance: PREDNISONE
     Indication: Metastases to liver
  11. GEMCITABINE [Concomitant]
     Active Substance: GEMCITABINE
     Indication: Follicular dendritic cell sarcoma
     Dosage: FIXED-DOSE RATE OF 900 MG/M? THROUGH IV INFUSION ON DAYS 1 AND 8
     Route: 042
  12. GEMCITABINE [Concomitant]
     Active Substance: GEMCITABINE
     Indication: Metastases to liver
  13. DOCETAXEL [Concomitant]
     Active Substance: DOCETAXEL
     Indication: Follicular dendritic cell sarcoma
     Dosage: 75 MG/M? INTRAVENOUSLY ON DAY 8, EVERY 21 DAYS
     Route: 042
  14. DOCETAXEL [Concomitant]
     Active Substance: DOCETAXEL
     Indication: Metastases to liver

REACTIONS (6)
  - Gastric haemorrhage [Unknown]
  - Melaena [Unknown]
  - Duodenal ulcer haemorrhage [Unknown]
  - Fatigue [Unknown]
  - Hypotension [Unknown]
  - Haemoglobin decreased [Unknown]
